FAERS Safety Report 18172197 (Version 1)
Quarter: 2020Q3

REPORT INFORMATION
  Report Type: Spontaneous
  Country: ES (occurrence: ES)
  Receive Date: 20200820
  Receipt Date: 20200820
  Transmission Date: 20201103
  Serious: Yes (Hospitalization, Other)
  Sender: FDA-Public Use
  Company Number: ES-AUROBINDO-AUR-APL-2020-037214

PATIENT
  Age: 15 Year
  Sex: Female

DRUGS (1)
  1. ETHINYLESTRADIOL+DROSPIRENONE FILM?COATED TABLETS [Suspect]
     Active Substance: DROSPIRENONE\ETHINYL ESTRADIOL
     Indication: PRODUCT USED FOR UNKNOWN INDICATION
     Dosage: UNK
     Route: 048

REACTIONS (7)
  - Palpitations [Unknown]
  - Pulmonary embolism [Recovering/Resolving]
  - Pain in extremity [Recovered/Resolved]
  - Dyspnoea [Unknown]
  - Embolism [Recovered/Resolved]
  - Thrombophlebitis superficial [Recovering/Resolving]
  - Deep vein thrombosis [Recovering/Resolving]
